FAERS Safety Report 8922096 (Version 5)
Quarter: 2013Q1

REPORT INFORMATION
  Report Type: Spontaneous
  Country: CA (occurrence: CA)
  Receive Date: 20121123
  Receipt Date: 20130208
  Transmission Date: 20140127
  Serious: Yes (Death, Life-Threatening, Hospitalization, Other)
  Sender: FDA-Public Use
  Company Number: PHHY2012CA056314

PATIENT
  Age: 69 Year
  Sex: Male

DRUGS (4)
  1. SANDOSTATIN LAR [Suspect]
     Indication: NEUROENDOCRINE TUMOUR
     Dosage: 30 MG, EVERY 4 WEEKS
     Route: 030
     Dates: start: 20120529, end: 20130108
  2. CHEMOTHERAPEUTICS [Concomitant]
     Dosage: UNK UKN, UNK
  3. DOMPERIDONE [Concomitant]
     Dosage: UNK UKN, UNK
  4. STEMETILL [Concomitant]
     Dosage: UNK UKN, UNK

REACTIONS (28)
  - Death [Fatal]
  - Terminal state [Unknown]
  - Infection [Unknown]
  - Blood pressure increased [Unknown]
  - Blood glucose increased [Unknown]
  - Jaundice [Unknown]
  - Renal impairment [Unknown]
  - Depression [Unknown]
  - Anger [Unknown]
  - Restlessness [Unknown]
  - Anxiety [Unknown]
  - Agitation [Unknown]
  - Gait disturbance [Unknown]
  - Blood pressure fluctuation [Unknown]
  - Frustration [Unknown]
  - Weight decreased [Unknown]
  - Oedema peripheral [Unknown]
  - Malaise [Unknown]
  - Back pain [Unknown]
  - Insomnia [Unknown]
  - Muscle spasms [Unknown]
  - Heart rate irregular [Unknown]
  - Abdominal distension [Unknown]
  - Fatigue [Unknown]
  - Nausea [Unknown]
  - Vomiting [Unknown]
  - Asthenia [Unknown]
  - Headache [Unknown]
